FAERS Safety Report 4939881-1 (Version None)
Quarter: 2006Q1

REPORT INFORMATION
  Report Type: 
  Country: None (occurrence: None)
  Receive Date: 20060310
  Receipt Date: 20060227
  Transmission Date: 20060701
  Serious: Yes (Hospitalization, Other)
  Sender: FDA-Public Use
  Company Number: JP-JNJFOC-20060104183

PATIENT
  Age: 34 Year
  Sex: Male

DRUGS (8)
  1. OFLOCET [Suspect]
     Route: 048
     Dates: start: 20050810, end: 20050917
  2. OFLOCET [Suspect]
     Route: 048
     Dates: start: 20050810, end: 20050917
  3. OFLOCET [Suspect]
     Route: 048
     Dates: start: 20050810, end: 20050917
  4. PREVISCAN [Interacting]
     Indication: ATRIAL FIBRILLATION
     Route: 048
     Dates: start: 20050811, end: 20050828
  5. FLECAINIDE ACETATE [Interacting]
     Indication: ATRIAL FIBRILLATION
     Route: 048
     Dates: start: 20050816, end: 20050915
  6. SOLUPRED [Concomitant]
     Route: 048
     Dates: start: 20050716, end: 20050721
  7. AUGMENTIN '125' [Concomitant]
     Dates: start: 20050701, end: 20050701
  8. AUGMENTIN '125' [Concomitant]
     Dates: start: 20050701, end: 20050701

REACTIONS (16)
  - ALANINE AMINOTRANSFERASE INCREASED [None]
  - ALOPECIA [None]
  - ARTHRALGIA [None]
  - BALANITIS CANDIDA [None]
  - CONFUSIONAL STATE [None]
  - DIFFICULTY IN WALKING [None]
  - DIPLOPIA [None]
  - DRUG INTERACTION [None]
  - DYSGEUSIA [None]
  - HAEMATURIA [None]
  - INTERNATIONAL NORMALISED RATIO INCREASED [None]
  - MEMORY IMPAIRMENT [None]
  - RENAL PAIN [None]
  - TENDONITIS [None]
  - VERTIGO [None]
  - VISION BLURRED [None]
